FAERS Safety Report 7434909-1 (Version None)
Quarter: 2011Q2

REPORT INFORMATION
  Report Type: 
  Country: None (occurrence: None)
  Receive Date: 20110425
  Receipt Date: 20110414
  Transmission Date: 20111010
  Serious: Yes (Hospitalization, Other)
  Sender: FDA-Public Use
  Company Number: JP-ASTRAZENECA-2011SE19415

PATIENT
  Age: 67 Year
  Sex: Male
  Weight: 60 kg

DRUGS (5)
  1. CRESTOR [Suspect]
     Indication: DYSLIPIDAEMIA
     Route: 048
     Dates: start: 20110307, end: 20110402
  2. SYMBICORT [Concomitant]
     Indication: ASTHMA
     Dosage: 160UG BID
     Route: 055
     Dates: start: 20110307, end: 20110402
  3. OMEPRAZOLE [Concomitant]
     Indication: REFLUX OESOPHAGITIS
     Route: 048
     Dates: start: 20110307, end: 20110402
  4. REBAMIPIDE [Concomitant]
     Indication: GASTRITIS
     Route: 048
     Dates: start: 20110307, end: 20110402
  5. EPADEL S [Suspect]
     Indication: DYSLIPIDAEMIA
     Route: 048
     Dates: start: 20110317, end: 20110402

REACTIONS (4)
  - PRURITUS [None]
  - BILE DUCT CANCER [None]
  - HEPATIC FUNCTION ABNORMAL [None]
  - JAUNDICE [None]
